FAERS Safety Report 6834896-0 (Version None)
Quarter: 2010Q3

REPORT INFORMATION
  Report Type: 
  Country: None (occurrence: None)
  Receive Date: 20100712
  Receipt Date: 20070424
  Transmission Date: 20110219
  Serious: Yes (Other)
  Sender: FDA-Public Use
  Company Number: US-PFIZER INC-2007022146

PATIENT
  Sex: Female

DRUGS (5)
  1. CHANTIX [Suspect]
     Indication: TOBACCO ABUSE
     Route: 048
     Dates: start: 20070303, end: 20070303
  2. ACETYLSALICYLIC ACID [Concomitant]
  3. CYMBALTA [Concomitant]
  4. REMERON [Concomitant]
  5. XANAX [Concomitant]

REACTIONS (1)
  - TACHYCARDIA [None]
